FAERS Safety Report 9338502 (Version 1)
Quarter: 2013Q2

REPORT INFORMATION
  Report Type: Spontaneous
  Country: BE (occurrence: BE)
  Receive Date: 20130610
  Receipt Date: 20130610
  Transmission Date: 20140414
  Serious: Yes (Hospitalization, Other)
  Sender: FDA-Public Use
  Company Number: BE-JNJFOC-20130504302

PATIENT
  Sex: Female

DRUGS (3)
  1. XARELTO [Suspect]
     Indication: THROMBOPHLEBITIS
     Dosage: FILM-COATED TABLET
     Route: 048
     Dates: start: 20130301, end: 20130411
  2. XARELTO [Suspect]
     Indication: ISCHAEMIC CEREBRAL INFARCTION
     Dosage: FILM-COATED TABLET
     Route: 048
     Dates: start: 20130301, end: 20130411
  3. XARELTO [Suspect]
     Indication: ATRIAL FIBRILLATION
     Dosage: FILM-COATED TABLET
     Route: 048
     Dates: start: 20130301, end: 20130411

REACTIONS (4)
  - Hepatocellular injury [Recovering/Resolving]
  - Liver function test abnormal [Recovering/Resolving]
  - Chronic obstructive pulmonary disease [Unknown]
  - Coagulopathy [Recovering/Resolving]
